FAERS Safety Report 9822405 (Version 1)
Quarter: 2014Q1

REPORT INFORMATION
  Report Type: Spontaneous
  Country: CA (occurrence: CA)
  Receive Date: 20140116
  Receipt Date: 20140116
  Transmission Date: 20141002
  Serious: Yes (Other)
  Sender: FDA-Public Use
  Company Number: CA-ROCHE-1332769

PATIENT
  Sex: Female

DRUGS (5)
  1. XOLAIR [Suspect]
     Indication: URTICARIA
     Route: 058
     Dates: start: 20130506
  2. REACTINE (CANADA) [Concomitant]
  3. HYDROXYCHLOROQUINE [Concomitant]
  4. PREDNISONE [Concomitant]
  5. BENADRYL (CANADA) [Concomitant]

REACTIONS (2)
  - Erythema [Unknown]
  - Off label use [Unknown]
